FAERS Safety Report 9419887 (Version 2)
Quarter: 2013Q3

REPORT INFORMATION
  Report Type: Spontaneous
  Country: US (occurrence: US)
  Receive Date: 20130725
  Receipt Date: 20130819
  Transmission Date: 20140515
  Serious: Yes (Hospitalization, Other)
  Sender: FDA-Public Use
  Company Number: US-ASTRAZENECA-2013SE48580

PATIENT
  Age: 63 Year
  Sex: Female
  Weight: 86.2 kg

DRUGS (9)
  1. LISINOPRIL [Suspect]
     Indication: CARDIAC DISORDER
     Route: 048
  2. BRILINTA [Suspect]
     Indication: STENT PLACEMENT
     Route: 048
     Dates: start: 201306
  3. BYDUREON [Suspect]
     Indication: TYPE 2 DIABETES MELLITUS
     Route: 065
     Dates: start: 20130329, end: 20130514
  4. VICTOZA [Concomitant]
     Indication: DIABETES MELLITUS
  5. GLUCOPHAGE [Concomitant]
  6. AMARYL [Concomitant]
  7. PRAVASTATIN [Concomitant]
     Indication: BLOOD CHOLESTEROL ABNORMAL
  8. CARVEDILOL [Concomitant]
     Indication: CARDIAC DISORDER
  9. ASPIRIN [Concomitant]
     Indication: CARDIAC DISORDER

REACTIONS (13)
  - Coronary artery occlusion [Recovering/Resolving]
  - Epistaxis [Unknown]
  - Eye haemorrhage [Unknown]
  - Constipation [Recovered/Resolved]
  - Injection site mass [Not Recovered/Not Resolved]
  - Injection site pain [Recovering/Resolving]
  - Injection site nodule [Recovering/Resolving]
  - Vaginal disorder [Not Recovered/Not Resolved]
  - Vulvovaginal pain [Not Recovered/Not Resolved]
  - Haemorrhoids [Unknown]
  - Contusion [Unknown]
  - Adverse event [Unknown]
  - Abdominal pain upper [Recovered/Resolved]
